FAERS Safety Report 17962088 (Version 3)
Quarter: 2020Q4

REPORT INFORMATION
  Report Type: Spontaneous
  Country: US (occurrence: US)
  Receive Date: 20200630
  Receipt Date: 20201109
  Transmission Date: 20210113
  Serious: No
  Sender: FDA-Public Use
  Company Number: US-PFIZER INC-2020251128

PATIENT
  Age: 58 Year
  Sex: Female

DRUGS (1)
  1. IBRANCE [Suspect]
     Active Substance: PALBOCICLIB
     Dosage: 125 MG, CYCLIC (SHE GETS IT AROUND EVERY OTHER CYCLE OF IBRANCE)
     Dates: start: 202004

REACTIONS (2)
  - Stomatitis [Unknown]
  - Product dose omission issue [Unknown]
